FAERS Safety Report 5888865-8 (Version None)
Quarter: 2008Q3

REPORT INFORMATION
  Report Type: 
  Country: None (occurrence: None)
  Receive Date: 20080919
  Receipt Date: 20080911
  Transmission Date: 20090109
  Serious: Yes (Other)
  Sender: FDA-Public Use
  Company Number: PHNU2008DE01968

PATIENT
  Sex: Male

DRUGS (11)
  1. RASILEZ [Suspect]
     Indication: HYPERTENSION
     Dosage: UNK
     Dates: start: 20070901
  2. RASILEZ [Suspect]
     Dosage: UNK
     Route: 048
     Dates: start: 20080701
  3. CARMEN [Concomitant]
     Indication: HYPERTENSION
  4. BISOMERCK [Concomitant]
     Indication: HYPERTENSION
  5. LISINOPRIL AND HYDROCHLOROTHIAZIDE [Concomitant]
     Indication: HYPERTENSION
     Dosage: 1 DF, BID
  6. ACETYL SALICYLIC ACID COMPOUND TAB [Concomitant]
     Indication: CORONARY ARTERY DISEASE
  7. CLOPIDOGREL [Concomitant]
     Indication: CORONARY ARTERY DISEASE
  8. SIMVASTATIN [Concomitant]
     Indication: HYPERCHOLESTEROLAEMIA
  9. OMEPRAZOLE [Concomitant]
     Indication: GASTRITIS
  10. LEXOTANIL [Concomitant]
  11. HYDROCHLOROTHIAZIDE [Concomitant]

REACTIONS (5)
  - ARRHYTHMIA [None]
  - BLOOD PRESSURE INCREASED [None]
  - HEADACHE [None]
  - PALPITATIONS [None]
  - RESTLESSNESS [None]
